FAERS Safety Report 25585500 (Version 1)
Quarter: 2025Q3

REPORT INFORMATION
  Report Type: Spontaneous
  Country: US (occurrence: None)
  Receive Date: 20250718
  Receipt Date: 20250718
  Transmission Date: 20251020
  Serious: Yes (Hospitalization, Other)
  Sender: FDA-CTU
  Company Number: None

PATIENT
  Age: 87 Year
  Sex: Female
  Weight: 48 kg

DRUGS (1)
  1. VANCOMYCIN [Suspect]
     Active Substance: VANCOMYCIN
     Indication: Urine analysis abnormal
     Route: 041
     Dates: start: 20250711, end: 20250711

REACTIONS (5)
  - Feeling hot [None]
  - Dizziness [None]
  - Nausea [None]
  - Erythema [None]
  - Drug hypersensitivity [None]

NARRATIVE: CASE EVENT DATE: 20250711
